FAERS Safety Report 12797330 (Version 1)
Quarter: 2016Q3

REPORT INFORMATION
  Report Type: Spontaneous
  Country: US (occurrence: US)
  Receive Date: 20160929
  Receipt Date: 20160929
  Transmission Date: 20161109
  Serious: No
  Sender: FDA-Public Use
  Company Number: None

PATIENT
  Age: 44 Year
  Sex: Female

DRUGS (2)
  1. ZYKADIA [Suspect]
     Active Substance: CERITINIB
     Indication: LUNG NEOPLASM MALIGNANT
  2. ZYKADIA [Suspect]
     Active Substance: CERITINIB
     Indication: AIR EMBOLISM

REACTIONS (1)
  - Disease progression [None]

NARRATIVE: CASE EVENT DATE: 20160929
